FAERS Safety Report 6081763-9 (Version None)
Quarter: 2009Q1

REPORT INFORMATION
  Report Type: 
  Country: None (occurrence: None)
  Receive Date: 20090213
  Receipt Date: 20090203
  Transmission Date: 20090719
  Serious: Yes (Death)
  Sender: FDA-Public Use
  Company Number: DSA_33181_2009

PATIENT
  Sex: Male

DRUGS (6)
  1. LORAZEPAM [Suspect]
     Indication: DRUG USE FOR UNKNOWN INDICATION
     Dosage: 1 MG QD ORAL, 0.5 MG QD ORAL
     Route: 048
     Dates: start: 20081001, end: 20081208
  2. LORAZEPAM [Suspect]
     Indication: DRUG USE FOR UNKNOWN INDICATION
     Dosage: 1 MG QD ORAL, 0.5 MG QD ORAL
     Route: 048
     Dates: start: 20081209, end: 20081222
  3. CYMBALTA [Concomitant]
  4. REMERON [Concomitant]
  5. ENALAPRIL [Concomitant]
  6. ASPRO CARDIO [Concomitant]

REACTIONS (2)
  - COMPLETED SUICIDE [None]
  - SUICIDAL BEHAVIOUR [None]
